FAERS Safety Report 8030837-1 (Version None)
Quarter: 2012Q1

REPORT INFORMATION
  Report Type: 
  Country: None (occurrence: None)
  Receive Date: 20120109
  Receipt Date: 20120106
  Transmission Date: 20120608
  Serious: Yes (Other)
  Sender: FDA-Public Use
  Company Number: US-ROCHE-1028342

PATIENT
  Sex: Female
  Weight: 59.02 kg

DRUGS (4)
  1. ZELBORAF [Suspect]
     Indication: MALIGNANT MELANOMA
     Route: 048
     Dates: start: 20110929
  2. MULTI-VITAMIN [Concomitant]
     Route: 048
  3. EFFEXOR XR [Concomitant]
     Indication: HOT FLUSH
     Route: 048
  4. RESTORIL [Concomitant]
     Indication: INSOMNIA
     Route: 048
     Dates: start: 20111005

REACTIONS (5)
  - MYALGIA [None]
  - BLISTER [None]
  - ARTHRALGIA [None]
  - RASH [None]
  - PYREXIA [None]
